FAERS Safety Report 24193165 (Version 3)
Quarter: 2024Q3

REPORT INFORMATION
  Report Type: Spontaneous
  Country: JP (occurrence: JP)
  Receive Date: 20240809
  Receipt Date: 20240917
  Transmission Date: 20241017
  Serious: Yes (Hospitalization)
  Sender: ROCHE
  Company Number: JP-CHUGAI-2024026691AA

PATIENT
  Age: 4 Decade
  Sex: Male

DRUGS (2)
  1. HEMLIBRA [Suspect]
     Active Substance: EMICIZUMAB-KXWH
     Indication: Haemophilia A with anti factor VIII
     Dosage: 240 MILLIGRAM, ONCE/MONTH
     Route: 050
     Dates: start: 20191107
  2. HEMLIBRA [Suspect]
     Active Substance: EMICIZUMAB-KXWH
     Dosage: 240 MILLIGRAM, ONCE/MONTH
     Route: 050

REACTIONS (1)
  - Aneurysm ruptured [Recovered/Resolved]

NARRATIVE: CASE EVENT DATE: 20240721
